FAERS Safety Report 4552911-4 (Version None)
Quarter: 2005Q1

REPORT INFORMATION
  Report Type: 
  Country: None (occurrence: None)
  Receive Date: 20050114
  Receipt Date: 20050105
  Transmission Date: 20050727
  Serious: Yes (Other)
  Sender: FDA-Public Use
  Company Number: JP-JNJFOC-20050100649

PATIENT
  Age: 56 Year
  Sex: Male

DRUGS (3)
  1. LEVOFLOXACIN [Suspect]
     Indication: INFECTION PROPHYLAXIS
  2. ZOCOR [Concomitant]
  3. CARDULAR [Concomitant]

REACTIONS (6)
  - ARTHRALGIA [None]
  - HAEMATOMA [None]
  - LIGAMENT SPRAIN [None]
  - MUSCLE RUPTURE [None]
  - MYALGIA [None]
  - TENDON DISORDER [None]
